FAERS Safety Report 5077436-1 (Version None)
Quarter: 2006Q3

REPORT INFORMATION
  Report Type: 
  Country: None (occurrence: None)
  Receive Date: 20060810
  Receipt Date: 20060222
  Transmission Date: 20061208
  Serious: No
  Sender: FDA-Public Use
  Company Number: US-GLAXOSMITHKLINE-A0594688A

PATIENT
  Sex: Female

DRUGS (2)
  1. PAXIL [Suspect]
     Indication: ANXIETY
     Route: 048
     Dates: start: 19940101
  2. PAROXETINE HCL [Suspect]
     Indication: ANXIETY
     Route: 048
     Dates: start: 20041201

REACTIONS (13)
  - BEDRIDDEN [None]
  - BLOOD CHOLESTEROL INCREASED [None]
  - BRUXISM [None]
  - DEPRESSION [None]
  - DRUG WITHDRAWAL SYNDROME [None]
  - DYSPNOEA [None]
  - FATIGUE [None]
  - ILL-DEFINED DISORDER [None]
  - MALAISE [None]
  - PARAESTHESIA [None]
  - PARTNER STRESS [None]
  - SENSATION OF HEAVINESS [None]
  - TOOTH LOSS [None]
